FAERS Safety Report 19310047 (Version 1)
Quarter: 2021Q2

REPORT INFORMATION
  Report Type: Report from Study
  Country: ZA (occurrence: ZA)
  Receive Date: 20210526
  Receipt Date: 20210526
  Transmission Date: 20210717
  Serious: Yes (Death)
  Sender: FDA-Public Use
  Company Number: ZA-ASTRAZENECA-2021A457836

PATIENT
  Age: 79 Year
  Sex: Female

DRUGS (7)
  1. ALDACTONE [Concomitant]
     Active Substance: SPIRONOLACTONE
     Dosage: 25.0MG UNKNOWN
     Route: 065
  2. YELATE [Concomitant]
     Active Substance: DULOXETINE HYDROCHLORIDE
     Dosage: 60.0MG UNKNOWN
     Route: 065
  3. PURESIS [Concomitant]
     Active Substance: FUROSEMIDE
     Dosage: 40.0MG UNKNOWN
     Route: 065
  4. SYMBICORD TURBUHALER [Suspect]
     Active Substance: BUDESONIDE\FORMOTEROL FUMARATE DIHYDRATE
     Indication: ASTHMA
     Dosage: 160 UG/INHAL AS REQUIRED AS REQUIRED
     Route: 055
     Dates: end: 202104
  5. CARLOC [Concomitant]
     Active Substance: CARVEDILOL
     Dosage: 12.5MG UNKNOWN
     Route: 065
  6. ASTHAVENT [Concomitant]
     Active Substance: ALBUTEROL SULFATE
     Dosage: 100.0UG UNKNOWN
     Route: 065
  7. ASPEN WARFARIN [Concomitant]
     Active Substance: WARFARIN
     Dosage: 5.0MG UNKNOWN
     Route: 065

REACTIONS (1)
  - Death [Fatal]

NARRATIVE: CASE EVENT DATE: 20210424
